FAERS Safety Report 11499413 (Version 1)
Quarter: 2015Q3

REPORT INFORMATION
  Report Type: Spontaneous
  Country: US (occurrence: US)
  Receive Date: 20150914
  Receipt Date: 20150914
  Transmission Date: 20151125
  Serious: No
  Sender: FDA-Public Use
  Company Number: US-TEVA-512471USA

PATIENT
  Sex: Male

DRUGS (2)
  1. NIFEDIPINE. [Interacting]
     Active Substance: NIFEDIPINE
     Indication: BLOOD PRESSURE INCREASED
     Route: 065
     Dates: start: 2014
  2. PANTOPRAZOLE [Suspect]
     Active Substance: PANTOPRAZOLE SODIUM
     Route: 065

REACTIONS (3)
  - Drug interaction [Unknown]
  - Drug ineffective [Unknown]
  - Blood pressure fluctuation [Unknown]
